FAERS Safety Report 8336264 (Version 2)
Quarter: 2012Q4

REPORT INFORMATION
  Report Type: 
  Country: US (occurrence: US)
  Receive Date: 20120113
  Receipt Date: 20121023
  Transmission Date: 20130627
  Serious: Yes (Death, Hospitalization)
  Sender: FDA-Public Use
  Company Number: US-ROCHE-1029306

PATIENT
  Sex: Female

DRUGS (3)
  1. AVASTIN [Suspect]
     Indication: RENAL CANCER
     Route: 065
  2. GEMZAR [Concomitant]
  3. TEMSIROLIMUS [Concomitant]

REACTIONS (5)
  - Nephropathy toxic [Fatal]
  - Red blood cell count decreased [Fatal]
  - Feeling abnormal [Fatal]
  - Cough [Fatal]
  - Renal failure [Fatal]
